FAERS Safety Report 21210140 (Version 1)
Quarter: 2022Q3

REPORT INFORMATION
  Report Type: Spontaneous
  Country: GB (occurrence: GB)
  Receive Date: 20220814
  Receipt Date: 20220814
  Transmission Date: 20221026
  Serious: Yes (Hospitalization, Other)
  Sender: FDA-Public Use
  Company Number: GB-ROCHE-2551369

PATIENT
  Age: 63 Year
  Sex: Female

DRUGS (36)
  1. TRASTUZUMAB [Suspect]
     Active Substance: TRASTUZUMAB
     Indication: Breast cancer
     Dosage: 630 MILLIGRAM, Q3WK
     Route: 042
     Dates: start: 20170825
  2. TRASTUZUMAB [Suspect]
     Active Substance: TRASTUZUMAB
     Dosage: 483 MILLIGRAM, Q3WK
     Route: 042
     Dates: start: 20170915
  3. TRASTUZUMAB [Suspect]
     Active Substance: TRASTUZUMAB
     Dosage: 504 MILLIGRAM, Q3WK
     Route: 042
     Dates: start: 20180209
  4. TRASTUZUMAB [Suspect]
     Active Substance: TRASTUZUMAB
     Dosage: 651 MILLIGRAM
     Route: 042
     Dates: start: 20211111
  5. DOCETAXEL [Suspect]
     Active Substance: DOCETAXEL
     Indication: Breast cancer
     Dosage: 108 MILLIGRAM, Q3WK,6 CYCLES
     Route: 042
     Dates: start: 20170825, end: 20170915
  6. DOCETAXEL [Suspect]
     Active Substance: DOCETAXEL
     Dosage: 96 MILLIGRAM, Q3WK,5 CYCLES
     Route: 042
     Dates: start: 20170915, end: 20171208
  7. EXEMESTANE [Suspect]
     Active Substance: EXEMESTANE
     Indication: Breast cancer
     Dosage: UNK UNK, QD
     Route: 048
     Dates: start: 20180209
  8. PERTUZUMAB [Suspect]
     Active Substance: PERTUZUMAB
     Indication: Breast cancer
     Dosage: 420 MILLIGRAM, Q3WK
     Route: 042
     Dates: start: 20170915
  9. PERTUZUMAB [Suspect]
     Active Substance: PERTUZUMAB
     Dosage: 840 MILLIGRAM, Q3WK
     Route: 042
     Dates: start: 20170824
  10. CALCIUM CARBONATE\CHOLECALCIFEROL [Concomitant]
     Active Substance: CALCIUM CARBONATE\CHOLECALCIFEROL
     Route: 048
     Dates: start: 20170825
  11. ALENDRONIC ACID [Concomitant]
     Active Substance: ALENDRONIC ACID
     Route: 048
  12. AMLODIPINE [Concomitant]
     Active Substance: AMLODIPINE BESYLATE
     Indication: Hypertension
     Route: 048
  13. APIXABAN [Concomitant]
     Active Substance: APIXABAN
     Indication: Dyspnoea
     Route: 065
     Dates: start: 20220614
  14. MYROXYLON BALSAMUM [Concomitant]
     Indication: Haemorrhoids
     Dosage: 1 OTHER
     Route: 061
     Dates: start: 20180504
  15. CIPROFLOXACIN [Concomitant]
     Active Substance: CIPROFLOXACIN
     Indication: Dyspnoea
     Route: 065
     Dates: start: 20220622
  16. CLOPIDOGREL [Concomitant]
     Active Substance: CLOPIDOGREL BISULFATE
     Indication: Dyspnoea
     Dosage: UNK
     Route: 065
     Dates: start: 20220612, end: 20220628
  17. CYCLIZINE [Concomitant]
     Active Substance: CYCLIZINE
     Indication: Nausea
     Dosage: 50 MILLIGRAM
     Route: 048
     Dates: start: 20190718
  18. XGEVA [Concomitant]
     Active Substance: DENOSUMAB
     Indication: Prophylaxis
     Route: 058
     Dates: start: 20180706
  19. LANOLIN\LIGHT MINERAL OIL\PARAFFIN [Concomitant]
     Active Substance: LANOLIN\LIGHT MINERAL OIL\PARAFFIN
     Indication: Rash pruritic
     Dosage: 1 OTHER
     Route: 061
     Dates: start: 20180810
  20. ELTROMBOPAG [Concomitant]
     Active Substance: ELTROMBOPAG
     Indication: Platelet count decreased
     Dosage: UNK
     Route: 065
     Dates: start: 20220331
  21. FERROUS SULFATE [Concomitant]
     Active Substance: FERROUS SULFATE
     Indication: Anaemia
     Route: 048
  22. FUROSEMIDE [Concomitant]
     Active Substance: FUROSEMIDE
     Indication: Dyspnoea
     Dosage: UNK
     Route: 065
     Dates: start: 20220612
  23. IBUPROFEN [Concomitant]
     Active Substance: IBUPROFEN
     Indication: Pain
     Dosage: UNK
     Route: 048
     Dates: start: 20190718
  24. LANSOPRAZOLE [Concomitant]
     Active Substance: LANSOPRAZOLE
     Dosage: 30 MILLIGRAM, UNK
     Route: 048
  25. LOSARTAN [Concomitant]
     Active Substance: LOSARTAN
     Indication: Hypertension
     Route: 048
  26. MENTHOL [Concomitant]
     Active Substance: MENTHOL
     Indication: Rash pruritic
     Dosage: 1 OTHER CREAM
     Route: 061
     Dates: start: 20180810
  27. NITROFURANTOIN [Concomitant]
     Active Substance: NITROFURANTOIN
     Indication: Confusional state
     Route: 048
     Dates: start: 20210107, end: 20210112
  28. CHLORPHENIRAMINE MALEATE [Concomitant]
     Active Substance: CHLORPHENIRAMINE MALEATE
     Indication: Rash
     Dosage: UNK
     Route: 048
     Dates: start: 20180504
  29. PREDNISOLONE [Concomitant]
     Active Substance: PREDNISOLONE
     Indication: Platelet count decreased
     Dosage: 65 MILLIGRAM
     Route: 065
     Dates: start: 20220302, end: 20220331
  30. PREDNISOLONE [Concomitant]
     Active Substance: PREDNISOLONE
     Dosage: 15 MILLIGRAM
     Route: 065
     Dates: start: 20220414
  31. PREDNISOLONE [Concomitant]
     Active Substance: PREDNISOLONE
     Dosage: 30 MILLIGRAM
     Route: 065
     Dates: start: 20220401, end: 20220413
  32. RAMIPRIL [Concomitant]
     Active Substance: RAMIPRIL
     Indication: Hypertension
     Route: 048
     Dates: start: 20180504
  33. ALBUTEROL [Concomitant]
     Active Substance: ALBUTEROL
     Dosage: 2 PUFF
     Route: 050
  34. SERTRALINE [Concomitant]
     Active Substance: SERTRALINE HYDROCHLORIDE
     Indication: Depression
     Route: 048
  35. TINZAPARIN [Concomitant]
     Active Substance: TINZAPARIN
     Indication: Dyspnoea
     Dosage: UNK
     Route: 065
     Dates: start: 20220612, end: 20220613
  36. TINZAPARIN [Concomitant]
     Active Substance: TINZAPARIN
     Indication: Pleuritic pain
     Dosage: 4500 INTERNATIONAL UNIT, QD
     Route: 058
     Dates: start: 20190117

REACTIONS (6)
  - Dyspnoea [Recovered/Resolved]
  - Dyspnoea [Recovered/Resolved]
  - Cough [Recovered/Resolved]
  - Lower respiratory tract infection [Recovered/Resolved]
  - COVID-19 [Recovered/Resolved]
  - Off label use [Unknown]

NARRATIVE: CASE EVENT DATE: 20200121
